FAERS Safety Report 11101087 (Version 3)
Quarter: 2015Q3

REPORT INFORMATION
  Report Type: Report from Study
  Country: US (occurrence: US)
  Receive Date: 20150508
  Receipt Date: 20150707
  Transmission Date: 20151125
  Serious: Yes (Hospitalization, Other)
  Sender: FDA-Public Use
  Company Number: US-SA-2015SA039185

PATIENT
  Age: 61 Year
  Sex: Female

DRUGS (1)
  1. AUBAGIO [Suspect]
     Active Substance: TERIFLUNOMIDE
     Indication: MULTIPLE SCLEROSIS
     Route: 048
     Dates: start: 20150301, end: 20150401

REACTIONS (3)
  - Hypertension [Not Recovered/Not Resolved]
  - Myocardial necrosis marker increased [Unknown]
  - Labile hypertension [Not Recovered/Not Resolved]

NARRATIVE: CASE EVENT DATE: 2015
